FAERS Safety Report 10586159 (Version 3)
Quarter: 2015Q2

REPORT INFORMATION
  Report Type: Spontaneous
  Country: IT (occurrence: IT)
  Receive Date: 20141116
  Receipt Date: 20150401
  Transmission Date: 20150821
  Serious: Yes (Hospitalization)
  Sender: FDA-Public Use
  Company Number: IT-009507513-1411ITA004142

PATIENT
  Age: 30 Year
  Sex: Female

DRUGS (7)
  1. LORATADINE. [Suspect]
     Active Substance: LORATADINE
     Dosage: TOTAL DAILY DOSE: 70 MG
     Route: 048
     Dates: start: 20141008, end: 20141008
  2. DORFLEX [Suspect]
     Active Substance: CAFFEINE\DIPYRONE\ORPHENADRINE
     Dosage: TOTAL DAILY DOSE: 9 POSOLOGICAL UNIT, TOTAL
     Route: 048
     Dates: start: 20141008, end: 20141008
  3. DICLOFENAC [Suspect]
     Active Substance: DICLOFENAC
     Dosage: TOTAL DAILY DOSE: 450 MG TOTAL
     Route: 048
     Dates: start: 20141008, end: 20141008
  4. ASPIRIN. [Suspect]
     Active Substance: ASPIRIN
     Dosage: TOTAL DAILY DOSE: 1500MG, TOTAL
     Route: 048
     Dates: start: 20141008, end: 20141008
  5. METRONIDAZOLE. [Suspect]
     Active Substance: METRONIDAZOLE
     Dosage: TOTAL DAILY DOSE: 200 MG
     Route: 048
     Dates: start: 20141008, end: 20141008
  6. ACETAMINOPHEN. [Suspect]
     Active Substance: ACETAMINOPHEN
     Dosage: TOTAL DAILY DOSE: 1500 MG, TOTAL
     Route: 048
     Dates: start: 20141008, end: 20141008
  7. LOPERAMIDE HYDROCHLORIDE. [Suspect]
     Active Substance: LOPERAMIDE HYDROCHLORIDE
     Dosage: TOTAL DAILY DOSE: 4 MG, TOTAL
     Route: 048
     Dates: start: 20141008, end: 20141008

REACTIONS (2)
  - Abdominal pain upper [Recovering/Resolving]
  - Intentional overdose [Recovering/Resolving]

NARRATIVE: CASE EVENT DATE: 20141008
